FAERS Safety Report 7627284 (Version 3)
Quarter: 2012Q4

REPORT INFORMATION
  Report Type: 
  Country: US (occurrence: US)
  Receive Date: 20101013
  Receipt Date: 20121129
  Transmission Date: 20130627
  Serious: No
  Sender: FDA-Public Use
  Company Number: US-ASTRAZENECA-2010SE16032

PATIENT
  Age: 52 Year
  Sex: Male
  Weight: 108 kg

DRUGS (4)
  1. SYMBICORT [Suspect]
     Indication: CHRONIC OBSTRUCTIVE PULMONARY DISEASE
     Dosage: 80/4.5, 2 PUFFS, BID
     Route: 055
     Dates: start: 200908
  2. SYMBICORT [Suspect]
     Indication: CHRONIC OBSTRUCTIVE PULMONARY DISEASE
     Dosage: 320 MCG, 2 PUFFS BID
     Route: 055
     Dates: start: 2010
  3. SYMBICORT [Suspect]
     Indication: CHRONIC OBSTRUCTIVE PULMONARY DISEASE
     Dosage: 320 MCG, 2 PUFFS PRN
     Route: 055
     Dates: start: 2010
  4. SYMBICORT [Suspect]
     Indication: CHRONIC OBSTRUCTIVE PULMONARY DISEASE
     Dosage: 160/ 4.5 MCG, 2 PUFFS, BID
     Route: 055

REACTIONS (7)
  - Nasal congestion [Unknown]
  - Amnesia [Unknown]
  - Wheezing [Not Recovered/Not Resolved]
  - Tremor [Recovered/Resolved]
  - Intentional drug misuse [Unknown]
  - Chronic obstructive pulmonary disease [Unknown]
  - Drug dose omission [Not Recovered/Not Resolved]
